FAERS Safety Report 10215437 (Version 1)
Quarter: 2014Q2

REPORT INFORMATION
  Report Type: Spontaneous
  Country: FR (occurrence: FR)
  Receive Date: 20140604
  Receipt Date: 20140604
  Transmission Date: 20141212
  Serious: Yes (Hospitalization)
  Sender: FDA-Public Use
  Company Number: FR-JNJFOC-20140513912

PATIENT
  Age: 62 Year
  Sex: Male

DRUGS (4)
  1. ZYTIGA [Suspect]
     Indication: PROSTATE CANCER
     Dosage: 250 MG
     Route: 048
     Dates: start: 20120709, end: 20140423
  2. LERCAN [Concomitant]
     Route: 065
  3. CORTANCYL [Concomitant]
     Route: 065
  4. COAPROVEL [Concomitant]
     Dosage: 300/12.5MG
     Route: 065

REACTIONS (2)
  - Renal failure acute [Unknown]
  - Arrhythmia supraventricular [Recovering/Resolving]
